FAERS Safety Report 9350763 (Version 2)
Quarter: 2013Q3

REPORT INFORMATION
  Report Type: Spontaneous
  Country: GB (occurrence: GB)
  Receive Date: 20130617
  Receipt Date: 20130717
  Transmission Date: 20140515
  Serious: Yes (Death)
  Sender: FDA-Public Use
  Company Number: PHFR2013GB003436

PATIENT
  Age: 43 Year
  Sex: Male

DRUGS (3)
  1. CLOZARIL [Suspect]
     Indication: SCHIZOPHRENIA
     Dosage: UNK
     Route: 048
     Dates: start: 20060516
  2. CLOZARIL [Suspect]
     Dosage: 300 MG, UNK
     Route: 048
     Dates: start: 200608
  3. HYOSCINE HYDROBROMIDE [Concomitant]
     Indication: HYPERTENSION
     Dosage: 300 UG,
     Route: 048
     Dates: start: 2006

REACTIONS (3)
  - Death [Fatal]
  - Constipation [Not Recovered/Not Resolved]
  - Glycosylated haemoglobin increased [Unknown]
